FAERS Safety Report 19056874 (Version 2)
Quarter: 2021Q1

REPORT INFORMATION
  Report Type: Report from Study
  Country: GB (occurrence: GB)
  Receive Date: 20210325
  Receipt Date: 20210330
  Transmission Date: 20210420
  Serious: Yes (Other)
  Sender: FDA-Public Use
  Company Number: GB-PFIZER INC-2021274831

PATIENT
  Sex: Female

DRUGS (10)
  1. MAGNESIUM CHLORIDE HEXAHYDRATE [Suspect]
     Active Substance: MAGNESIUM CHLORIDE
     Indication: PERITONEAL DIALYSIS
     Dosage: 5 L, TWICE DAILY
  2. MAGNESIUM CHLORIDE HEXAHYDRATE [Suspect]
     Active Substance: MAGNESIUM CHLORIDE
     Dosage: 5 L, ONCE DAILY
     Dates: start: 202102
  3. GLUCOSE MONOHYDRATE [Suspect]
     Active Substance: DEXTROSE MONOHYDRATE
     Indication: PERITONEAL DIALYSIS
     Dosage: 5 L, TWICE DAILY
  4. GLUCOSE MONOHYDRATE [Suspect]
     Active Substance: DEXTROSE MONOHYDRATE
     Dosage: 5 L, ONCE DAILY
     Dates: start: 202102
  5. BACTERIOSTATIC SODIUM CHLORIDE [Suspect]
     Active Substance: SODIUM CHLORIDE
     Indication: PERITONEAL DIALYSIS
     Dosage: 5 L, TWICE DAILY
  6. BACTERIOSTATIC SODIUM CHLORIDE [Suspect]
     Active Substance: SODIUM CHLORIDE
     Dosage: 5 L, ONCE DAILY
     Dates: start: 202102
  7. CALCIUM CHLORIDE DIHYDRATE [Suspect]
     Active Substance: CALCIUM CHLORIDE
     Indication: PERITONEAL DIALYSIS
     Dosage: 5 L, TWICE DAILY
  8. SODIUM LACTATE. [Suspect]
     Active Substance: SODIUM LACTATE
     Indication: PERITONEAL DIALYSIS
     Dosage: 5 L, TWICE DAILY
  9. SODIUM LACTATE. [Suspect]
     Active Substance: SODIUM LACTATE
     Dosage: 5 L, ONCE DAILY
     Dates: start: 202102
  10. CALCIUM CHLORIDE DIHYDRATE [Suspect]
     Active Substance: CALCIUM CHLORIDE
     Dosage: 5 L, ONCE DAILY
     Dates: start: 202102

REACTIONS (1)
  - Fluid overload [Unknown]

NARRATIVE: CASE EVENT DATE: 202102
